FAERS Safety Report 14040784 (Version 1)
Quarter: 2017Q4

REPORT INFORMATION
  Report Type: Spontaneous
  Country: US (occurrence: US)
  Receive Date: 20171004
  Receipt Date: 20171004
  Transmission Date: 20180321
  Serious: Yes (Congenital Anomaly, Other)
  Sender: FDA-Public Use
  Company Number: US-ABBVIE-00P-163-0181310-00

PATIENT
  Age: 0 Day
  Sex: Male
  Weight: 1.46 kg

DRUGS (1)
  1. SYNTHROID [Suspect]
     Active Substance: LEVOTHYROXINE SODIUM
     Indication: HYPOTHYROIDISM
     Route: 048

REACTIONS (27)
  - Birth trauma [Recovered/Resolved]
  - Petit mal epilepsy [Unknown]
  - Learning disorder [Recovering/Resolving]
  - Sleep apnoea syndrome [Not Recovered/Not Resolved]
  - Hernia [Recovered/Resolved]
  - Staphylococcal infection [Recovered/Resolved]
  - Foetal growth restriction [Unknown]
  - Foreign body in respiratory tract [Recovered/Resolved]
  - Small for dates baby [Unknown]
  - Anaemia [Unknown]
  - Foetal exposure during pregnancy [Unknown]
  - Intellectual disability [Unknown]
  - Atrial fibrillation [Not Recovered/Not Resolved]
  - Congenital optic nerve anomaly [Unknown]
  - Ear disorder [Unknown]
  - Breech presentation [Recovered/Resolved]
  - Learning disability [Unknown]
  - Autism spectrum disorder [Not Recovered/Not Resolved]
  - Personality disorder of childhood [Unknown]
  - Testicular retraction [Recovered/Resolved]
  - Lung disorder [Recovered/Resolved]
  - Intestinal perforation [Recovered/Resolved]
  - Blindness [Not Recovered/Not Resolved]
  - Lymphadenopathy [Not Recovered/Not Resolved]
  - Attention deficit/hyperactivity disorder [Unknown]
  - Developmental delay [Unknown]
  - Hepatic enzyme increased [Not Recovered/Not Resolved]

NARRATIVE: CASE EVENT DATE: 19820404
